FAERS Safety Report 24091018 (Version 1)
Quarter: 2024Q3

REPORT INFORMATION
  Report Type: Spontaneous
  Country: US (occurrence: None)
  Receive Date: 20240713
  Receipt Date: 20240713
  Transmission Date: 20241017
  Serious: No
  Sender: Public
  Company Number: None

PATIENT
  Age: 40 Year
  Sex: Female
  Weight: 60 kg

DRUGS (1)
  1. WALGREENS ADVANCED SCAR GEL [Suspect]
     Active Substance: ALLANTOIN
     Indication: Scar
     Dosage: 5 DRO(S) DAILY TOPICAL?
     Route: 061
     Dates: start: 20240711, end: 20240712

REACTIONS (1)
  - Hypersensitivity [None]

NARRATIVE: CASE EVENT DATE: 20240712
